FAERS Safety Report 6602068-0 (Version None)
Quarter: 2010Q1

REPORT INFORMATION
  Report Type: 
  Country: None (occurrence: None)
  Receive Date: 20100225
  Receipt Date: 20100215
  Transmission Date: 20100710
  Serious: Yes (Other)
  Sender: FDA-Public Use
  Company Number: PHHY2010BR09190

PATIENT
  Age: 14 Month
  Sex: Female

DRUGS (3)
  1. CYCLOSPORINE [Suspect]
     Indication: CORD BLOOD TRANSPLANT THERAPY
  2. CYCLOSPORINE [Suspect]
     Indication: PROPHYLAXIS AGAINST GRAFT VERSUS HOST DISEASE
  3. BUSULFAN [Concomitant]
     Indication: CORD BLOOD TRANSPLANT THERAPY

REACTIONS (9)
  - ACUTE GRAFT VERSUS HOST DISEASE [None]
  - ANAEMIA HAEMOLYTIC AUTOIMMUNE [None]
  - CANDIDIASIS [None]
  - COMPLICATIONS OF BONE MARROW TRANSPLANT [None]
  - INFECTION [None]
  - LYMPHOPENIA [None]
  - NEPHROTIC SYNDROME [None]
  - PNEUMONIA CYTOMEGALOVIRAL [None]
  - PNEUMONIA RESPIRATORY SYNCYTIAL VIRAL [None]
